FAERS Safety Report 6179463-X (Version None)
Quarter: 2009Q2

REPORT INFORMATION
  Report Type: 
  Country: None (occurrence: None)
  Receive Date: 20090505
  Receipt Date: 20090430
  Transmission Date: 20091009
  Serious: Yes (Hospitalization)
  Sender: FDA-Public Use
  Company Number: US-GILEAD-2009-0020688

PATIENT
  Sex: Male
  Weight: 99.88 kg

DRUGS (10)
  1. LETAIRIS [Suspect]
     Indication: PULMONARY ARTERIAL HYPERTENSION
     Route: 048
     Dates: start: 20081016
  2. LETAIRIS [Suspect]
     Dates: start: 20071114
  3. VENTAVIS [Concomitant]
  4. REVATIO [Concomitant]
  5. LIPITOR [Concomitant]
  6. SPIRONOLACTONE [Concomitant]
  7. TORSEMIDE [Concomitant]
  8. NEURONTIN [Concomitant]
  9. CITALOPRAM HYDROBROMIDE [Concomitant]
  10. KLOR-CON [Concomitant]

REACTIONS (1)
  - SYNCOPE [None]
